FAERS Safety Report 7231264-7 (Version None)
Quarter: 2011Q1

REPORT INFORMATION
  Report Type: 
  Country: None (occurrence: None)
  Receive Date: 20110118
  Receipt Date: 20110111
  Transmission Date: 20110831
  Serious: Yes (Hospitalization, Other)
  Sender: FDA-Public Use
  Company Number: US-B.I. PHARMACEUTICALS,INC./RIDGEFIELD-2011-BP-00895BP

PATIENT
  Sex: Female

DRUGS (2)
  1. PRADAXA [Suspect]
     Indication: ATRIAL FIBRILLATION
     Dosage: 300 MG
     Route: 048
     Dates: start: 20101206
  2. CARDIZEM [Suspect]
     Indication: ATRIAL FIBRILLATION
     Dosage: 180 MG
     Dates: start: 20101206

REACTIONS (2)
  - ATRIAL FIBRILLATION [None]
  - GOUT [None]
